FAERS Safety Report 8030177-0 (Version None)
Quarter: 2011Q4

REPORT INFORMATION
  Report Type: 
  Country: None (occurrence: None)
  Receive Date: 20111130
  Receipt Date: 20110810
  Transmission Date: 20120403
  Serious: Yes (Other)
  Sender: FDA-Public Use
  Company Number: US201005002550

PATIENT
  Sex: Female
  Weight: 69.4 kg

DRUGS (4)
  1. EXENATIDE UNK STRENGTH PEN, DISPOSABLE DEVICE (EXENATIDE PEN (UNKNOWN [Concomitant]
  2. TYLENOL /SCH/ (PARACETAMOL) [Concomitant]
  3. METFORMIN HCL [Concomitant]
  4. BYETTA [Suspect]
     Dates: start: 20060801, end: 20080401

REACTIONS (1)
  - PANCREATITIS ACUTE [None]
